FAERS Safety Report 7588164-2 (Version None)
Quarter: 2011Q2

REPORT INFORMATION
  Report Type: 
  Country: None (occurrence: None)
  Receive Date: 20110627
  Receipt Date: 20110621
  Transmission Date: 20111010
  Serious: Yes (Hospitalization)
  Sender: FDA-Public Use
  Company Number: DSA_46963_2011

PATIENT
  Sex: Male

DRUGS (10)
  1. BETA BLOCKER [Concomitant]
  2. DIURETICS [Concomitant]
  3. ASPIRIN [Concomitant]
  4. LANTUS [Suspect]
     Indication: TYPE 2 DIABETES MELLITUS
     Dosage: (DF)
  5. GLIPIZIDE [Suspect]
     Indication: TYPE 2 DIABETES MELLITUS
     Dosage: (DF)
  6. ORGANIC NITRATES [Concomitant]
  7. ENALAPRIL MALEATE [Suspect]
     Indication: PRODUCT USED FOR UNKNOWN INDICATION
     Dosage: (DF)
  8. SAXAGLIPTIN [Suspect]
     Indication: TYPE 2 DIABETES MELLITUS
     Dosage: (DF)
     Dates: start: 20101022
  9. ACE INHIBITORS [Concomitant]
  10. PLACEBO [Suspect]
     Indication: TYPE 2 DIABETES MELLITUS
     Dosage: (DF)
     Dates: start: 20101022

REACTIONS (2)
  - FALL [None]
  - CHEST DISCOMFORT [None]
